FAERS Safety Report 15958466 (Version 1)
Quarter: 2019Q1

REPORT INFORMATION
  Report Type: Spontaneous
  Country: US (occurrence: US)
  Receive Date: 20190213
  Receipt Date: 20190213
  Transmission Date: 20190417
  Serious: No
  Sender: FDA-Public Use
  Company Number: US-TOLMAR, INC.-TOLG20190065

PATIENT
  Age: 14 Year
  Sex: Female

DRUGS (3)
  1. CLINDAMYCIN AND BENZOYL PEROXIDE [Suspect]
     Active Substance: BENZOYL PEROXIDE\CLINDAMYCIN PHOSPHATE
     Dosage: UNKNOWN
     Route: 061
     Dates: start: 2017, end: 2018
  2. CLINDAMYCIN AND BENZOYL PEROXIDE [Suspect]
     Active Substance: BENZOYL PEROXIDE\CLINDAMYCIN PHOSPHATE
     Indication: ACNE
     Dosage: UNKNOWN
     Route: 061
     Dates: start: 20180131
  3. CLINDAMYCIN AND BENZOYL PEROXIDE [Suspect]
     Active Substance: BENZOYL PEROXIDE\CLINDAMYCIN PHOSPHATE
     Dosage: UNKNOWN
     Route: 061
     Dates: start: 2018, end: 2018

REACTIONS (5)
  - Skin reaction [Unknown]
  - Skin burning sensation [Unknown]
  - Pruritus [Unknown]
  - Adverse reaction [Unknown]
  - Eye swelling [Unknown]

NARRATIVE: CASE EVENT DATE: 2018
